FAERS Safety Report 4927871-4 (Version None)
Quarter: 2006Q1

REPORT INFORMATION
  Report Type: 
  Country: None (occurrence: None)
  Receive Date: 20060228
  Receipt Date: 20020710
  Transmission Date: 20060701
  Serious: Yes (Other)
  Sender: FDA-Public Use
  Company Number: SE-GLAXOSMITHKLINE-B0273786A

PATIENT
  Sex: Male

DRUGS (1)
  1. ZYBAN [Suspect]
     Dosage: 150MG VARIABLE DOSE
     Route: 065
     Dates: start: 20020106, end: 20020116

REACTIONS (3)
  - DEPRESSION [None]
  - DISABILITY [None]
  - MANIA [None]
